FAERS Safety Report 18890602 (Version 1)
Quarter: 2021Q1

REPORT INFORMATION
  Report Type: Report from Study
  Country: None (occurrence: US)
  Receive Date: 20210215
  Receipt Date: 20210215
  Transmission Date: 20210420
  Serious: Yes (Other)
  Sender: FDA-Public Use
  Company Number: US-ABBVIE-21K-163-3770563-00

PATIENT
  Age: 43 Year
  Sex: Male

DRUGS (1)
  1. HUMIRA [Suspect]
     Active Substance: ADALIMUMAB
     Indication: ANKYLOSING SPONDYLITIS
     Route: 058

REACTIONS (6)
  - Hyperhidrosis [Unknown]
  - Loss of consciousness [Unknown]
  - Fatigue [Not Recovered/Not Resolved]
  - COVID-19 [Unknown]
  - Dizziness [Unknown]
  - Syncope [Unknown]

NARRATIVE: CASE EVENT DATE: 202003
